FAERS Safety Report 5589574-5 (Version None)
Quarter: 2008Q1

REPORT INFORMATION
  Report Type: 
  Country: None (occurrence: None)
  Receive Date: 20080114
  Receipt Date: 20080110
  Transmission Date: 20080703
  Serious: Yes (Hospitalization)
  Sender: FDA-Public Use
  Company Number: A0701885A

PATIENT
  Age: 43 Year
  Sex: Female

DRUGS (8)
  1. ALLI [Suspect]
     Dates: start: 20070401, end: 20071005
  2. GABAPENTIN [Concomitant]
     Route: 048
  3. LORAZEPAM [Concomitant]
     Route: 048
  4. TRAZODONE HCL [Concomitant]
     Route: 048
  5. CYMBALTA [Concomitant]
     Route: 048
  6. OXYCODONE [Concomitant]
     Route: 048
  7. HYDROCODONE ELIXIR [Concomitant]
     Route: 048
  8. PROVENTIL GENTLEHALER [Concomitant]
     Route: 055

REACTIONS (9)
  - ABDOMINAL DISTENSION [None]
  - ABDOMINAL PAIN UPPER [None]
  - ALOPECIA [None]
  - CONSTIPATION [None]
  - GALLBLADDER DISORDER [None]
  - INTESTINAL OBSTRUCTION [None]
  - NAUSEA [None]
  - PAIN [None]
  - VOMITING [None]
